FAERS Safety Report 6102778-8 (Version None)
Quarter: 2009Q1

REPORT INFORMATION
  Report Type: 
  Country: None (occurrence: None)
  Receive Date: 20090304
  Receipt Date: 20090227
  Transmission Date: 20090719
  Serious: No
  Sender: FDA-Public Use
  Company Number: US-B.I. PHARMACEUTICALS,INC./RIDGEFIELD-2009-BP-00883BP

PATIENT
  Sex: Female

DRUGS (21)
  1. MIRAPEX [Suspect]
     Indication: RESTLESS LEGS SYNDROME
  2. MIRAPEX [Suspect]
     Indication: PAIN IN EXTREMITY
  3. VITAMINS [Concomitant]
  4. ASPIRIN [Concomitant]
  5. TUMS [Concomitant]
  6. SIMVASTAT [Concomitant]
  7. LITHIUM [Concomitant]
  8. PAXIL [Concomitant]
  9. LYRICA [Concomitant]
  10. NAPROXEN [Concomitant]
  11. LEVOXYL [Concomitant]
  12. NITROGLYCERIN [Concomitant]
  13. INSULIN [Concomitant]
  14. GLYCOLAX [Concomitant]
  15. OXYBUTYNIN CHLORIDE [Concomitant]
  16. NYSTATIN [Concomitant]
  17. MONOPRIL [Concomitant]
  18. TANDEM RINSE [Concomitant]
  19. OMEPRAZOLE [Concomitant]
  20. AMOXICILLIN [Concomitant]
  21. PEPTO-BISMOL [Concomitant]

REACTIONS (1)
  - PAIN [None]
